FAERS Safety Report 22951822 (Version 2)
Quarter: 2023Q4

REPORT INFORMATION
  Report Type: Report from Study
  Country: US (occurrence: US)
  Receive Date: 20230918
  Receipt Date: 20231006
  Transmission Date: 20240109
  Serious: Yes (Other)
  Sender: FDA-Public Use
  Company Number: US-ABBVIE-5406167

PATIENT
  Sex: Male

DRUGS (2)
  1. IMBRUVICA [Suspect]
     Active Substance: IBRUTINIB
     Indication: Chronic lymphocytic leukaemia
     Dosage: START DATE-2023
     Route: 048
  2. IMBRUVICA [Suspect]
     Active Substance: IBRUTINIB
     Indication: Chronic lymphocytic leukaemia
     Dosage: STOP DATE-2023
     Route: 048
     Dates: start: 202301

REACTIONS (6)
  - Pleural effusion [Unknown]
  - Diarrhoea [Recovered/Resolved]
  - Pneumonia [Unknown]
  - White blood cell count increased [Not Recovered/Not Resolved]
  - Atrial fibrillation [Unknown]
  - Chest injury [Unknown]

NARRATIVE: CASE EVENT DATE: 20230101
